FAERS Safety Report 18053618 (Version 1)
Quarter: 2020Q3

REPORT INFORMATION
  Report Type: Spontaneous
  Country: DK (occurrence: DK)
  Receive Date: 20200722
  Receipt Date: 20200722
  Transmission Date: 20201103
  Serious: Yes (Hospitalization)
  Sender: FDA-Public Use
  Company Number: DK-TEVA-2020-DK-1803116

PATIENT
  Age: 69 Year
  Sex: Female

DRUGS (10)
  1. ZINKSULFAT [Concomitant]
     Indication: MINERAL SUPPLEMENTATION
     Dosage: 22 MG
     Route: 048
     Dates: start: 20200507
  2. FERROUS FUMARATE [Concomitant]
     Active Substance: FERROUS FUMARATE
     Indication: MINERAL SUPPLEMENTATION
     Dosage: STRENGTH: 100 + 60 MG:1 DOSAGEFORM
     Route: 048
     Dates: start: 20200130
  3. PANTOPRAZOLE [Concomitant]
     Active Substance: PANTOPRAZOLE
     Indication: PROPHYLAXIS AGAINST GASTROINTESTINAL ULCER
     Dosage: 80 MILLIGRAM
     Route: 048
     Dates: start: 20191203
  4. POTASSIUM CHLORIDE. [Concomitant]
     Active Substance: POTASSIUM CHLORIDE
     Indication: MINERAL SUPPLEMENTATION
     Dosage: STRENGTH: 75 MG / ML AND 750 MG?DOSAGE: VARIATION
     Route: 048
     Dates: start: 20191207
  5. FUROSEMIDE. [Concomitant]
     Active Substance: FUROSEMIDE
     Indication: DIURETIC THERAPY
     Dosage: 160 MILLIGRAM
     Route: 048
     Dates: start: 20200513
  6. AMOXICILLIN. [Concomitant]
     Active Substance: AMOXICILLIN
     Indication: ENDOCARDITIS
     Dosage: 3000 MILLIGRAM
     Route: 048
     Dates: start: 20200515, end: 20200612
  7. CREON [Concomitant]
     Active Substance: PANCRELIPASE AMYLASE\PANCRELIPASE LIPASE\PANCRELIPASE PROTEASE
     Indication: STEATORRHOEA
     Dosage: STRENGTH: LIPASE 40,000 EPS AND LIPASE 25,000 EPS?DOSAGE: 40,000 3XDGL + 25,000 AS NEEDED MAX 4XDGL
     Route: 048
     Dates: start: 20200131
  8. CALCIUM OG D?VITAMIN [Concomitant]
     Indication: MINERAL SUPPLEMENTATION
     Dosage: STRENGTH: 400 MG + 19 .G:2 DOSAGEFORM
     Route: 048
     Dates: start: 20200129
  9. LINEZOLID. [Suspect]
     Active Substance: LINEZOLID
     Indication: ENDOCARDITIS
     Dosage: DOSAGE: STARTING DOSE 600 MG X 2. D. 23MAY2020, 600MG MORNING, 300MG EVENING.
     Route: 048
     Dates: start: 20200515, end: 20200612
  10. VIBEDEN [Concomitant]
     Indication: VITAMIN B12 DEFICIENCY
     Dosage: 1 ML
     Route: 030
     Dates: start: 20200212

REACTIONS (2)
  - Discomfort [Recovering/Resolving]
  - Pancytopenia [Recovering/Resolving]

NARRATIVE: CASE EVENT DATE: 202006
